FAERS Safety Report 20305180 (Version 1)
Quarter: 2022Q1

REPORT INFORMATION
  Report Type: Spontaneous
  Country: US (occurrence: None)
  Receive Date: 20220106
  Receipt Date: 20220106
  Transmission Date: 20220423
  Serious: Yes (Life-Threatening)
  Sender: FDA-Public Use
  Company Number: None

PATIENT
  Age: 52 Year
  Sex: Female
  Weight: 95.25 kg

DRUGS (7)
  1. BAMLANIVIMAB\ETESEVIMAB [Suspect]
     Active Substance: BAMLANIVIMAB\ETESEVIMAB
     Indication: COVID-19
     Route: 042
  2. LEVOTHYROXINE [Concomitant]
     Active Substance: LEVOTHYROXINE
  3. ATORBASTIN [Concomitant]
  4. PHENTRAMIN [Concomitant]
  5. AIRBORNE [Concomitant]
     Active Substance: HERBALS\MINERALS\VITAMINS
  6. VITAMIN D3 [Concomitant]
     Active Substance: CHOLECALCIFEROL
  7. ZINC IRON [Concomitant]

REACTIONS (6)
  - Drug hypersensitivity [None]
  - Upper airway obstruction [None]
  - Feeling hot [None]
  - Erythema [None]
  - Capillary fragility [None]
  - Blood pressure increased [None]

NARRATIVE: CASE EVENT DATE: 20211229
